FAERS Safety Report 9912488 (Version 2)
Quarter: 2014Q1

REPORT INFORMATION
  Report Type: Spontaneous
  Country: US (occurrence: US)
  Receive Date: 20140220
  Receipt Date: 20140306
  Transmission Date: 20141002
  Serious: No
  Sender: FDA-Public Use
  Company Number: US-009507513-1402USA002336

PATIENT
  Age: 34 Year
  Sex: Female
  Weight: 153.74 kg

DRUGS (1)
  1. NEXPLANON [Suspect]
     Indication: CONTRACEPTION
     Dosage: 68 MG FORM-STR/3 YEAR IMPLANT
     Route: 059
     Dates: start: 20140127

REACTIONS (1)
  - Implant site pain [Not Recovered/Not Resolved]
